FAERS Safety Report 15841788 (Version 1)
Quarter: 2018Q4

REPORT INFORMATION
  Report Type: Spontaneous
  Country: US (occurrence: US)
  Receive Date: 20181221
  Receipt Date: 20181221
  Transmission Date: 20190205
  Serious: Yes (Hospitalization)
  Sender: FDA-Public Use
  Company Number: None

PATIENT
  Age: 46 Year
  Sex: Female

DRUGS (4)
  1. GAMUNEX-C [Suspect]
     Active Substance: HUMAN IMMUNOGLOBULIN G
     Indication: IMMUNODEFICIENCY
     Dosage: ?          OTHER STRENGTH:20GM/200;?
     Dates: start: 20180716
  2. CYCLOSPORINE. [Concomitant]
     Active Substance: CYCLOSPORINE
  3. HUMULIN N [Concomitant]
     Active Substance: INSULIN HUMAN
  4. ALENDRONATE [Concomitant]
     Active Substance: ALENDRONATE SODIUM

REACTIONS (2)
  - Product supply issue [None]
  - Product dose omission [None]

NARRATIVE: CASE EVENT DATE: 20181206
